FAERS Safety Report 6175435-X (Version None)
Quarter: 2009Q2

REPORT INFORMATION
  Report Type: 
  Country: None (occurrence: None)
  Receive Date: 20090430
  Receipt Date: 20090421
  Transmission Date: 20091009
  Serious: Yes (Hospitalization)
  Sender: FDA-Public Use
  Company Number: US-BAXTER-2009BH005966

PATIENT
  Age: 70 Year
  Sex: Male

DRUGS (25)
  1. DIANEAL [Suspect]
     Indication: PERITONEAL DIALYSIS
     Route: 033
     Dates: start: 20080305
  2. EPO 900 [Concomitant]
     Indication: ANAEMIA
     Route: 058
     Dates: start: 20090325
  3. CELEXA [Concomitant]
     Indication: DEPRESSION
     Route: 048
     Dates: start: 20090328
  4. BUSPAR [Concomitant]
     Indication: DEPRESSION
     Route: 048
     Dates: start: 20090318
  5. LIPITOR [Concomitant]
     Indication: HYPERLIPIDAEMIA
     Route: 048
     Dates: start: 20090206
  6. RESTORIL [Concomitant]
     Indication: INSOMNIA
     Route: 048
     Dates: start: 20090129
  7. DARVOCET-N 100 [Concomitant]
     Indication: PAIN
     Route: 048
     Dates: start: 20090123
  8. REGLAN [Concomitant]
     Indication: NAUSEA
     Route: 048
     Dates: start: 20090105
  9. VICODIN [Concomitant]
     Indication: PAIN
     Route: 048
     Dates: start: 20090105
  10. FLOMAX [Concomitant]
     Indication: BENIGN PROSTATIC HYPERPLASIA
     Route: 048
     Dates: start: 20081112
  11. LOPRESSOR [Concomitant]
     Indication: HYPERTENSION
     Route: 048
     Dates: start: 20081112
  12. SENSIPAR [Concomitant]
     Indication: HYPERPARATHYROIDISM
     Route: 048
     Dates: start: 20081112
  13. GENTAMICIN [Concomitant]
     Indication: INFECTION
     Route: 061
     Dates: start: 20081106
  14. ZITHROMAX [Concomitant]
     Indication: BRONCHITIS
     Route: 048
     Dates: start: 20081002
  15. RENVELA [Concomitant]
     Indication: ELECTROLYTE IMBALANCE
     Route: 048
     Dates: start: 20080813
  16. ZITHROMAX [Concomitant]
     Route: 048
     Dates: start: 20080822
  17. PREVACID [Concomitant]
     Indication: GASTRIC HYPOMOTILITY
     Route: 048
     Dates: start: 20080627
  18. FUROSEMIDE [Concomitant]
     Indication: FLUID RETENTION
     Route: 048
     Dates: start: 20080425
  19. PHENERGAN [Concomitant]
     Indication: NAUSEA
     Route: 048
     Dates: start: 20080417
  20. MIRALAX [Concomitant]
     Indication: CONSTIPATION
     Route: 048
     Dates: start: 20080328
  21. FLOMAX [Concomitant]
     Route: 048
     Dates: start: 20080328
  22. ALLEGRA [Concomitant]
     Indication: NASAL CONGESTION
     Route: 048
     Dates: start: 20080328
  23. ALLOPURINOL [Concomitant]
     Indication: GOUT
     Route: 048
     Dates: start: 20080328
  24. BACTROBAN [Concomitant]
     Indication: PROPHYLAXIS
     Route: 061
     Dates: start: 20080311
  25. CIPROFLOXACIN [Concomitant]
     Indication: PROPHYLAXIS
     Route: 048
     Dates: start: 20080311

REACTIONS (2)
  - MYOCARDIAL INFARCTION [None]
  - POST PROCEDURAL HAEMATOMA [None]
